FAERS Safety Report 8172552-X (Version None)
Quarter: 2012Q1

REPORT INFORMATION
  Report Type: 
  Country: None (occurrence: None)
  Receive Date: 20120229
  Receipt Date: 20120217
  Transmission Date: 20120608
  Serious: Yes (Other)
  Sender: FDA-Public Use
  Company Number: US-BAYER-2011-049651

PATIENT
  Age: 46 Year
  Sex: Female
  Weight: 76.19 kg

DRUGS (7)
  1. YASMIN [Suspect]
     Indication: MENSTRUATION IRREGULAR
  2. EMERGEN-C [Concomitant]
  3. YASMIN [Suspect]
     Indication: PREMENSTRUAL SYNDROME
  4. YAZ [Suspect]
     Indication: PREMENSTRUAL SYNDROME
  5. YAZ [Suspect]
     Indication: ACNE
     Dosage: UNK
     Dates: start: 20070322, end: 20090727
  6. YAZ [Suspect]
     Indication: MENSTRUATION IRREGULAR
  7. YASMIN [Suspect]
     Indication: ACNE
     Dosage: UNK
     Dates: start: 20030121, end: 20070125

REACTIONS (12)
  - PAIN [None]
  - GENERAL PHYSICAL HEALTH DETERIORATION [None]
  - ANXIETY [None]
  - JOINT SWELLING [None]
  - DYSPNOEA [None]
  - THROMBOSIS [None]
  - INJURY [None]
  - HYPOAESTHESIA [None]
  - DEEP VEIN THROMBOSIS [None]
  - PAIN IN EXTREMITY [None]
  - EMOTIONAL DISTRESS [None]
  - PARAESTHESIA [None]
